FAERS Safety Report 7321252-4 (Version None)
Quarter: 2011Q1

REPORT INFORMATION
  Report Type: 
  Country: None (occurrence: None)
  Receive Date: 20110223
  Receipt Date: 20110223
  Transmission Date: 20110831
  Serious: Yes (Death, Hospitalization)
  Sender: FDA-Public Use
  Company Number: None

PATIENT
  Sex: Female
  Weight: 70.8 kg

DRUGS (2)
  1. TRETINOIN [Suspect]
     Dosage: 520 MG
     Dates: end: 20110219
  2. IDARUBICIN [Suspect]
     Dosage: 63 MG
     Dates: end: 20110210

REACTIONS (16)
  - HAEMORRHAGE INTRACRANIAL [None]
  - HYPOXIA [None]
  - NEUTROPHIL COUNT DECREASED [None]
  - CULTURE URINE POSITIVE [None]
  - INTRACRANIAL PRESSURE INCREASED [None]
  - ACINETOBACTER INFECTION [None]
  - BRAIN OEDEMA [None]
  - FLUID OVERLOAD [None]
  - HYPERTENSION [None]
  - HYPOTENSION [None]
  - GENERAL PHYSICAL HEALTH DETERIORATION [None]
  - COAGULOPATHY [None]
  - MENTAL STATUS CHANGES [None]
  - HYPOVENTILATION [None]
  - WHITE BLOOD CELL COUNT DECREASED [None]
  - CARDIAC ARREST [None]
